FAERS Safety Report 7774614-5 (Version None)
Quarter: 2011Q3

REPORT INFORMATION
  Report Type: 
  Country: None (occurrence: None)
  Receive Date: 20110923
  Receipt Date: 20110922
  Transmission Date: 20111222
  Serious: Yes (Hospitalization)
  Sender: FDA-Public Use
  Company Number: CO-ROCHE-804015

PATIENT
  Sex: Male

DRUGS (2)
  1. CAPECITABINE [Suspect]
     Indication: GASTRIC CANCER
     Dosage: DAILY
     Route: 048
     Dates: start: 20110730
  2. AVASTIN [Concomitant]
     Dosage: LAST INFUSION WAS ON 03 AUG 2011
     Dates: start: 20110720

REACTIONS (1)
  - DYSPHAGIA [None]
